FAERS Safety Report 9543675 (Version 2)
Quarter: 2014Q1

REPORT INFORMATION
  Report Type: Spontaneous
  Country: US (occurrence: None)
  Receive Date: 20130524
  Receipt Date: 20130724
  Transmission Date: 20141002
  Serious: Yes (Disabling, Other)
  Sender: FDA-Public Use
  Company Number: PHEH2012US023946

PATIENT
  Age: 42 Year
  Sex: Female
  Weight: 81.6 kg

DRUGS (4)
  1. GILENYA [Suspect]
     Indication: MULTIPLE SCLEROSIS
     Route: 048
     Dates: start: 20110817
  2. OXCARBAZEPINE [Concomitant]
  3. TRAZODONE [Concomitant]
  4. NUCYNTA (TAPENTADOL HYDROCHLORIDE) [Concomitant]

REACTIONS (1)
  - Herpes zoster [None]
